FAERS Safety Report 13291666 (Version 2)
Quarter: 2017Q1

REPORT INFORMATION
  Report Type: Report from Study
  Country: SV (occurrence: SV)
  Receive Date: 20170303
  Receipt Date: 20170317
  Transmission Date: 20170428
  Serious: Yes (Death, Hospitalization)
  Sender: FDA-Public Use
  Company Number: PHHY2017SV032162

PATIENT
  Age: 23 Year
  Sex: Female
  Weight: 50 kg

DRUGS (1)
  1. GLIVEC [Suspect]
     Active Substance: IMATINIB MESYLATE
     Indication: ACUTE LYMPHOCYTIC LEUKAEMIA
     Dosage: 800 MG, QD
     Route: 065
     Dates: start: 20160719, end: 20170227

REACTIONS (8)
  - White blood cell count decreased [Unknown]
  - Haemoglobin decreased [Unknown]
  - Pneumonia [Fatal]
  - Drug resistance [Fatal]
  - Acute lymphocytic leukaemia [Fatal]
  - Blast cell count increased [Unknown]
  - Platelet count decreased [Unknown]
  - Blood creatinine decreased [Unknown]

NARRATIVE: CASE EVENT DATE: 20170223
